FAERS Safety Report 8948152 (Version 1)
Quarter: 2012Q4

REPORT INFORMATION
  Report Type: Spontaneous
  Country: IT (occurrence: None)
  Receive Date: 20121126
  Receipt Date: 20121126
  Transmission Date: 20130627
  Serious: Yes (Death)
  Sender: FDA-Public Use
  Company Number: 1497010

PATIENT

DRUGS (4)
  1. METHOTREXATE [Suspect]
     Indication: OSTEOSARCOMA
     Dosage: 60,000 mg/m^2, UNKNOWN, UNKNOWN
  2. CISPLATIN [Suspect]
     Indication: OSTEOSARCOMA
     Dosage: 600 mg/m^2, UNKNOWN, UNKNOWN
  3. DOXORUBICIN [Suspect]
     Route: 041
  4. IFOSFAMIDE [Suspect]
     Indication: OSTEOSARCOMA
     Dosage: 40.000 mg/m^2, UNKNOWN , UNKNOWN

REACTIONS (2)
  - Glioblastoma [None]
  - Colon cancer [None]
